FAERS Safety Report 12537014 (Version 1)
Quarter: 2016Q3

REPORT INFORMATION
  Report Type: Spontaneous
  Country: AT (occurrence: AT)
  Receive Date: 20160707
  Receipt Date: 20160707
  Transmission Date: 20161109
  Serious: No
  Sender: FDA-Public Use
  Company Number: AT-JNJFOC-20160702868

PATIENT
  Sex: Female

DRUGS (1)
  1. DUROGESIC [Suspect]
     Active Substance: FENTANYL
     Indication: PRODUCT USED FOR UNKNOWN INDICATION
     Dosage: INITIATED APPROXIMATELY THREE MONTHS PRIOR TO REPORTING
     Route: 065

REACTIONS (1)
  - Wrong technique in product usage process [Unknown]
